FAERS Safety Report 5520721-7 (Version None)
Quarter: 2007Q4

REPORT INFORMATION
  Report Type: 
  Country: None (occurrence: None)
  Receive Date: 20071115
  Receipt Date: 20071115
  Transmission Date: 20080405
  Serious: Yes (Hospitalization)
  Sender: FDA-Public Use
  Company Number: None

PATIENT
  Age: 60 Year
  Sex: Male
  Weight: 60.6913 kg

DRUGS (2)
  1. OXALIPLATIN [Suspect]
     Indication: NEOPLASM MALIGNANT
  2. TAXOTERE [Suspect]
     Indication: NEOPLASM MALIGNANT

REACTIONS (3)
  - DEHYDRATION [None]
  - DIARRHOEA [None]
  - FEBRILE NEUTROPENIA [None]
